FAERS Safety Report 20966917 (Version 1)
Quarter: 2022Q2

REPORT INFORMATION
  Report Type: Report from Study
  Country: IT (occurrence: IT)
  Receive Date: 20220616
  Receipt Date: 20220616
  Transmission Date: 20220721
  Serious: Yes (Other)
  Sender: FDA-Public Use
  Company Number: None

PATIENT
  Age: 76 Year
  Sex: Male

DRUGS (2)
  1. VALGANCICLOVIR [Suspect]
     Active Substance: VALGANCICLOVIR
     Route: 065
  2. RAMIPRIL [Concomitant]
     Active Substance: RAMIPRIL
     Dosage: UNIT DOSE : 2.5 MG

REACTIONS (2)
  - Angioedema [Unknown]
  - Pruritus [Unknown]

NARRATIVE: CASE EVENT DATE: 20220221
